FAERS Safety Report 5097186-5 (Version None)
Quarter: 2006Q3

REPORT INFORMATION
  Report Type: 
  Country: None (occurrence: None)
  Receive Date: 20060906
  Receipt Date: 20060829
  Transmission Date: 20061208
  Serious: Yes (Other)
  Sender: FDA-Public Use
  Company Number: US-BAYER-200615296BWH

PATIENT
  Age: 46 Year
  Sex: Male

DRUGS (1)
  1. AVELOX [Suspect]
     Indication: BRONCHITIS
     Dosage: TOTAL DAILY DOSE: 400 MG  UNIT DOSE: 400 MG
     Route: 048
     Dates: start: 20060827

REACTIONS (6)
  - BLOOD BLISTER [None]
  - DIZZINESS [None]
  - GINGIVAL DISCOLOURATION [None]
  - HAEMOPTYSIS [None]
  - HEART RATE INCREASED [None]
  - OCULAR HYPERAEMIA [None]
